FAERS Safety Report 10821345 (Version 4)
Quarter: 2015Q3

REPORT INFORMATION
  Report Type: Report from Study
  Country: US (occurrence: US)
  Receive Date: 20150218
  Receipt Date: 20150819
  Transmission Date: 20151125
  Serious: No
  Sender: FDA-Public Use
  Company Number: US-GILEAD-2015-0137866

PATIENT
  Age: 89 Year
  Sex: Male
  Weight: 73.5 kg

DRUGS (4)
  1. TYVASO [Suspect]
     Active Substance: TREPROSTINIL
     Indication: PULMONARY ARTERIAL HYPERTENSION
     Dosage: 54 ?G, QID
     Route: 055
     Dates: start: 20150301, end: 201503
  2. TYVASO [Suspect]
     Active Substance: TREPROSTINIL
     Dosage: 18-54 ?G, QID
     Route: 055
     Dates: start: 20110624
  3. AMBRISENTAN [Suspect]
     Active Substance: AMBRISENTAN
     Indication: PRODUCT USED FOR UNKNOWN INDICATION
     Dosage: 10 MG, QD
     Route: 065
     Dates: start: 20110525
  4. COUMADIN [Concomitant]
     Active Substance: WARFARIN SODIUM

REACTIONS (14)
  - Hyposmia [Unknown]
  - Epistaxis [Unknown]
  - Productive cough [Not Recovered/Not Resolved]
  - Anaemia [Unknown]
  - Headache [Unknown]
  - Hypogeusia [Unknown]
  - Fatigue [Unknown]
  - Presyncope [Unknown]
  - Cough [Not Recovered/Not Resolved]
  - Abdominal discomfort [Unknown]
  - Dyspnoea [Unknown]
  - Diarrhoea [Unknown]
  - Dizziness [Unknown]
  - Asthenia [Unknown]

NARRATIVE: CASE EVENT DATE: 201502
